FAERS Safety Report 8062261-X (Version None)
Quarter: 2012Q1

REPORT INFORMATION
  Report Type: 
  Country: None (occurrence: None)
  Receive Date: 20120123
  Receipt Date: 20120112
  Transmission Date: 20120608
  Serious: Yes (Hospitalization)
  Sender: FDA-Public Use
  Company Number: US-JNJFOC-20111107972

PATIENT
  Sex: Female
  Weight: 54.9 kg

DRUGS (2)
  1. GROWTH HORMONE [Concomitant]
  2. REMICADE [Suspect]
     Indication: INFLAMMATORY BOWEL DISEASE
     Route: 042
     Dates: start: 20060406

REACTIONS (1)
  - STAPHYLOCOCCAL OSTEOMYELITIS [None]
